FAERS Safety Report 6930075-7 (Version None)
Quarter: 2010Q3

REPORT INFORMATION
  Report Type: 
  Country: None (occurrence: None)
  Receive Date: 20100813
  Receipt Date: 20100729
  Transmission Date: 20110219
  Serious: Yes (Death, Other)
  Sender: FDA-Public Use
  Company Number: 010660

PATIENT

DRUGS (7)
  1. BUSULFEX [Suspect]
     Indication: STEM CELL TRANSPLANT
     Dosage: 0.8 MG/KG, Q6HR, INTRAVENOUS
     Route: 042
  2. CYCLOPHOSPHAMIDE [Concomitant]
  3. ETOPOSIDE [Concomitant]
  4. RITUXIMAB (RITUXIMAB) [Concomitant]
  5. IBRITUMOMAB TIUXETAN (IBRITUMOMAB TIUXETAN) [Concomitant]
  6. PHENYTOIN [Concomitant]
  7. MESNA [Concomitant]

REACTIONS (10)
  - ALANINE AMINOTRANSFERASE INCREASED [None]
  - ASPARTATE AMINOTRANSFERASE INCREASED [None]
  - DIARRHOEA [None]
  - EPISTAXIS [None]
  - INFECTION [None]
  - MUCOSAL INFLAMMATION [None]
  - NAUSEA [None]
  - NON-HODGKIN'S LYMPHOMA [None]
  - THROMBOCYTOPENIA [None]
  - VOMITING [None]
